FAERS Safety Report 23258527 (Version 2)
Quarter: 2023Q4

REPORT INFORMATION
  Report Type: Report from Study
  Country: BE (occurrence: None)
  Receive Date: 20231204
  Receipt Date: 20231206
  Transmission Date: 20240109
  Serious: Yes (Hospitalization)
  Sender: FDA-Public Use
  Company Number: BE-ROCHE-3467631

PATIENT
  Age: 63 Year
  Sex: Male
  Weight: 82.6 kg

DRUGS (18)
  1. ENTRECTINIB [Suspect]
     Active Substance: ENTRECTINIB
     Indication: Hepatobiliary cancer
     Dosage: START DATE OF MOST RECENT DOSE OF STUDY DRUG PRIOR TO AE-26/NOV/2023, DOSE LAST STUDY DRUG ADMIN PRI
     Route: 048
     Dates: start: 20231102
  2. ASPIRIN [Concomitant]
     Active Substance: ASPIRIN
     Indication: Intermittent claudication
     Route: 048
     Dates: start: 20230203
  3. ASPIRIN [Concomitant]
     Active Substance: ASPIRIN
     Route: 048
     Dates: start: 20231201
  4. ATENOLOL [Concomitant]
     Active Substance: ATENOLOL
     Indication: Hypertension
     Route: 048
     Dates: start: 2017
  5. ROSUVASTATIN [Concomitant]
     Active Substance: ROSUVASTATIN
     Indication: Hypercholesterolaemia
     Route: 048
     Dates: start: 20230203
  6. ENOXAPARIN SODIUM [Concomitant]
     Active Substance: ENOXAPARIN SODIUM
     Route: 058
     Dates: start: 20231201
  7. PANTOPRAZOLE SODIUM [Concomitant]
     Active Substance: PANTOPRAZOLE SODIUM
     Route: 048
     Dates: start: 20231129
  8. ELECTROLYTES NOS [Concomitant]
     Active Substance: ELECTROLYTES NOS
     Route: 042
     Dates: start: 20231201, end: 20231202
  9. ONDANSETRON [Concomitant]
     Active Substance: ONDANSETRON
     Route: 042
     Dates: start: 20231201, end: 20231201
  10. HEPARIN [Concomitant]
     Active Substance: HEPARIN SODIUM
     Route: 042
     Dates: start: 20231201, end: 20231201
  11. HEPARIN [Concomitant]
     Active Substance: HEPARIN SODIUM
     Route: 042
     Dates: start: 20231201, end: 20231201
  12. DEXAMETHASONE [Concomitant]
     Active Substance: DEXAMETHASONE
     Route: 042
     Dates: start: 20231201, end: 20231201
  13. SUFENTA [Concomitant]
     Active Substance: SUFENTANIL CITRATE
     Route: 042
     Dates: start: 20231201, end: 20231201
  14. ULTIVA [Concomitant]
     Active Substance: REMIFENTANIL HYDROCHLORIDE
     Route: 042
     Dates: start: 20231201, end: 20231201
  15. DIPRIVAN [Concomitant]
     Active Substance: ISOPROPYL ALCOHOL\PROPOFOL
     Route: 042
     Dates: start: 20231201, end: 20231201
  16. ACETAMINOPHEN [Concomitant]
     Active Substance: ACETAMINOPHEN
     Route: 042
     Dates: start: 20231201, end: 20231201
  17. MORPHINE [Concomitant]
     Active Substance: MORPHINE
     Route: 042
     Dates: start: 20231201, end: 20231201
  18. METAMIZOL [Concomitant]
     Active Substance: METAMIZOLE SODIUM
     Route: 042
     Dates: start: 20231201, end: 20231201

REACTIONS (1)
  - Peripheral ischaemia [Not Recovered/Not Resolved]

NARRATIVE: CASE EVENT DATE: 20231126
